FAERS Safety Report 9224795 (Version 1)
Quarter: 2013Q2

REPORT INFORMATION
  Report Type: Spontaneous
  Country: US (occurrence: None)
  Receive Date: 20130409
  Receipt Date: 20130409
  Transmission Date: 20140414
  Serious: Yes (Hospitalization)
  Sender: FDA-Public Use
  Company Number: None

PATIENT
  Age: 39 Year
  Sex: Female

DRUGS (1)
  1. LIDOCAINE [Suspect]
     Dosage: (2 X 1/4 5% LIDOCAINE TRANSDERMAL)
     Route: 062
     Dates: start: 20130129, end: 20130209

REACTIONS (1)
  - Ankle fracture [None]
